FAERS Safety Report 17027813 (Version 2)
Quarter: 2022Q2

REPORT INFORMATION
  Report Type: Spontaneous
  Country: SK (occurrence: SK)
  Receive Date: 20191113
  Receipt Date: 20220414
  Transmission Date: 20220721
  Serious: Yes (Other)
  Sender: FDA-Public Use
  Company Number: SK-EMA-DD-20181105-SHUKLA_V-103029

PATIENT
  Age: 59 Year
  Sex: Male

DRUGS (12)
  1. METFORMIN [Interacting]
     Active Substance: METFORMIN HYDROCHLORIDE
     Indication: Diabetes mellitus
     Dosage: 2 DF, UNK
     Route: 065
  2. METFORMIN [Interacting]
     Active Substance: METFORMIN HYDROCHLORIDE
     Dosage: 2000 MILLIGRAM, QD (1000 MG, BID)
     Route: 065
  3. METOPROLOL [Interacting]
     Active Substance: METOPROLOL
     Indication: Product used for unknown indication
     Dosage: 100 MILLIGRAM, QD (50 MG, BID)
     Route: 065
  4. METOPROLOL [Interacting]
     Active Substance: METOPROLOL
     Dosage: 1 DOSAGE FORM
     Route: 065
  5. METOPROLOL [Interacting]
     Active Substance: METOPROLOL
     Dosage: 2 DOSAGE FORM, QD (1 DF, BID)
     Route: 065
  6. ASPIRIN [Interacting]
     Active Substance: ASPIRIN
     Indication: Product used for unknown indication
     Dosage: 1 DOSAGE FORM, QD
     Route: 065
  7. ASPIRIN [Interacting]
     Active Substance: ASPIRIN
     Dosage: 100 MILLIGRAM, QD
     Route: 065
  8. GLIMEPIRIDE [Interacting]
     Active Substance: GLIMEPIRIDE
     Indication: Diabetes mellitus
     Dosage: 6 MILLIGRAM(6 MG, 1 DAY)
     Route: 065
  9. GLIMEPIRIDE [Interacting]
     Active Substance: GLIMEPIRIDE
     Dosage: 1 DOSAGE FORM, QD
     Route: 065
  10. URAPIDIL [Interacting]
     Active Substance: URAPIDIL
     Indication: Product used for unknown indication
     Dosage: 2 DF, UNK
     Route: 065
  11. URAPIDIL [Interacting]
     Active Substance: URAPIDIL
     Dosage: 6 MILLIGRAM, QD (3 MG, BID)
     Route: 065
  12. URAPIDIL [Interacting]
     Active Substance: URAPIDIL
     Dosage: 30 MG, 2 DAY
     Route: 065

REACTIONS (2)
  - Erectile dysfunction [Unknown]
  - Drug interaction [Unknown]
